FAERS Safety Report 16090045 (Version 1)
Quarter: 2019Q1

REPORT INFORMATION
  Report Type: Spontaneous
  Country: US (occurrence: US)
  Receive Date: 20190319
  Receipt Date: 20190319
  Transmission Date: 20190418
  Serious: No
  Sender: FDA-Public Use
  Company Number: US-SA-2019SA071587

PATIENT
  Weight: 81.65 kg

DRUGS (2)
  1. AMBIEN [Suspect]
     Active Substance: ZOLPIDEM TARTRATE
  2. PREGABALIN. [Suspect]
     Active Substance: PREGABALIN
     Dosage: 1 DF, BID
     Route: 048

REACTIONS (3)
  - Pruritus [Unknown]
  - Swollen tongue [Unknown]
  - Drug hypersensitivity [Unknown]
